FAERS Safety Report 24909360 (Version 1)
Quarter: 2025Q1

REPORT INFORMATION
  Report Type: Spontaneous
  Country: IT (occurrence: IT)
  Receive Date: 20250131
  Receipt Date: 20250131
  Transmission Date: 20250408
  Serious: Yes (Other)
  Sender: RANBAXY
  Company Number: IT-SUN PHARMACEUTICAL INDUSTRIES LTD-2025RR-491013

PATIENT
  Sex: Female

DRUGS (1)
  1. AZITHROMYCIN [Suspect]
     Active Substance: AZITHROMYCIN
     Indication: Antibiotic therapy
     Route: 065

REACTIONS (4)
  - Electrocardiogram QT prolonged [Unknown]
  - Tachyarrhythmia [Unknown]
  - Feeling abnormal [Unknown]
  - Maternal exposure during pregnancy [Unknown]
